FAERS Safety Report 12708603 (Version 3)
Quarter: 2016Q4

REPORT INFORMATION
  Report Type: Report from Study
  Country: US (occurrence: US)
  Receive Date: 20160901
  Receipt Date: 20161007
  Transmission Date: 20170207
  Serious: Yes (Hospitalization)
  Sender: FDA-Public Use
  Company Number: US-PFIZER INC-2012017453

PATIENT
  Age: 66 Year
  Sex: Female
  Weight: 93 kg

DRUGS (25)
  1. SYNTHROID [Concomitant]
     Active Substance: LEVOTHYROXINE SODIUM
     Indication: HYPOTHYROIDISM
     Dosage: 100 UG, 1X/DAY
     Route: 048
     Dates: start: 20101001
  2. CLEOCIN [Suspect]
     Active Substance: CLINDAMYCIN PHOSPHATE
     Indication: CELLULITIS
     Dosage: 150 MG, 4X/DAY
     Route: 048
     Dates: start: 20111010, end: 20111019
  3. MAXZIDE [Concomitant]
     Active Substance: HYDROCHLOROTHIAZIDE\TRIAMTERENE
     Indication: FLUID RETENTION
     Dosage: 50/25 MG, 1X/DAY
     Route: 048
     Dates: start: 2005
  4. ACTIFED COLD AND ALLERGY [Concomitant]
     Indication: SEASONAL ALLERGY
     Dosage: (CHLORPHENIRAMINE MALEATE 4MG; PHENYLEPHRINE 10MG)
     Route: 048
     Dates: start: 2003
  5. NEURONTIN [Concomitant]
     Active Substance: GABAPENTIN
     Indication: FIBROMYALGIA
     Dosage: 600 MG, 2X/DAY
     Route: 048
     Dates: start: 2011
  6. BACTROBAN [Concomitant]
     Active Substance: MUPIROCIN\MUPIROCIN CALCIUM
     Indication: CELLULITIS
     Dosage: 1 APPL, AS DIRECTED
     Route: 061
     Dates: start: 20111130
  7. NEXIUM [Concomitant]
     Active Substance: ESOMEPRAZOLE MAGNESIUM
     Indication: PROPHYLAXIS
     Dosage: UNK MG, 1X/DAY
     Route: 048
     Dates: start: 20080710, end: 20120113
  8. CYMBALTA [Concomitant]
     Active Substance: DULOXETINE HYDROCHLORIDE
     Indication: FIBROMYALGIA
     Dosage: 30 MG, 1X/DAY
     Route: 048
     Dates: start: 201106
  9. CALCIUM WITH VITAMIN D [Concomitant]
     Active Substance: CALCIUM\VITAMIN D
     Indication: MINERAL SUPPLEMENTATION
     Dosage: 600 MG, 2X/DAY
     Route: 048
     Dates: start: 200801, end: 201009
  10. MOMETASONE [Concomitant]
     Active Substance: MOMETASONE
     Indication: CELLULITIS
     Dosage: 0.1 %, AS DIRECTED
     Route: 061
     Dates: start: 20111010, end: 20111129
  11. BACTRIM DS [Suspect]
     Active Substance: SULFAMETHOXAZOLE\TRIMETHOPRIM
     Indication: URINARY TRACT INFECTION
     Dosage: 160 MG, 2X/DAY
     Route: 048
     Dates: start: 20110926, end: 20111007
  12. BACTRIM DS [Suspect]
     Active Substance: SULFAMETHOXAZOLE\TRIMETHOPRIM
     Indication: SINUS CONGESTION
     Dosage: 160 MG, 2X/DAY
     Dates: start: 20120112, end: 20120114
  13. LISINOPRIL. [Concomitant]
     Active Substance: LISINOPRIL
     Indication: HYPERTENSION
     Dosage: 10 MG, 1X/DAY
     Route: 048
     Dates: start: 201111
  14. IBUPROFEN. [Suspect]
     Active Substance: IBUPROFEN
     Indication: RHEUMATOID ARTHRITIS
  15. TOPROL XL [Concomitant]
     Active Substance: METOPROLOL SUCCINATE
     Indication: HYPERTENSION
     Dosage: 100 MG, 1X/DAY
     Route: 048
     Dates: start: 2006, end: 201111
  16. IRON [Concomitant]
     Active Substance: IRON
     Indication: MINERAL SUPPLEMENTATION
     Dosage: 2 TABS, 1X/DAY
     Route: 048
     Dates: start: 20090201, end: 201101
  17. VESICARE [Concomitant]
     Active Substance: SOLIFENACIN SUCCINATE
     Indication: HYPERTONIC BLADDER
     Dosage: 10 MG, 1X/DAY
     Route: 048
     Dates: start: 201109
  18. IBUPROFEN. [Suspect]
     Active Substance: IBUPROFEN
     Indication: OSTEOARTHRITIS
     Dosage: UNK
     Route: 048
     Dates: start: 20080711, end: 20120113
  19. CIPROFLOXACIN. [Suspect]
     Active Substance: CIPROFLOXACIN
     Indication: URINARY TRACT INFECTION
     Dosage: 250 MG, 2X/DAY
     Route: 048
     Dates: start: 20111212, end: 20111222
  20. TYLENOL PM [Concomitant]
     Active Substance: ACETAMINOPHEN\DIPHENHYDRAMINE
     Indication: INSOMNIA
     Dosage: 500 MG, AS NEEDED
     Route: 048
     Dates: start: 2005, end: 201106
  21. CAMPHOR W/MENTHOL [Concomitant]
     Active Substance: CAMPHOR (SYNTHETIC)\MENTHOL
     Indication: OSTEOARTHRITIS
     Dosage: AS NEEDED
     Route: 061
     Dates: start: 200804, end: 201112
  22. CALCIUM [Concomitant]
     Active Substance: CALCIUM
     Indication: MINERAL SUPPLEMENTATION
     Dosage: 875 MG, AS NEEDED
     Route: 048
     Dates: start: 20101001
  23. ACETAMINOPHEN. [Concomitant]
     Active Substance: ACETAMINOPHEN
     Indication: OSTEOARTHRITIS
     Dosage: 1300 MG, AS NEEDED
     Route: 048
     Dates: start: 20080822, end: 2010
  24. ZOCOR [Concomitant]
     Active Substance: SIMVASTATIN
     Indication: HYPERCHOLESTEROLAEMIA
     Dosage: 10 MG, 1X/DAY
     Route: 048
     Dates: start: 201102, end: 201104
  25. ACETYLSALICYLIC ACID [Concomitant]
     Active Substance: ASPIRIN
     Indication: CARDIOVASCULAR EVENT PROPHYLAXIS
     Dosage: 325 MG, 1X/DAY
     Route: 048
     Dates: start: 201110

REACTIONS (3)
  - Acute kidney injury [Recovered/Resolved]
  - Clostridium difficile infection [Recovered/Resolved]
  - Gastritis [Recovered/Resolved with Sequelae]

NARRATIVE: CASE EVENT DATE: 20120103
